FAERS Safety Report 4947297-7 (Version None)
Quarter: 2006Q1

REPORT INFORMATION
  Report Type: 
  Country: None (occurrence: None)
  Receive Date: 20060313
  Receipt Date: 20060301
  Transmission Date: 20060701
  Serious: Yes (Other)
  Sender: FDA-Public Use
  Company Number: US-2006-004351

PATIENT
  Age: 49 Year
  Sex: Female

DRUGS (15)
  1. BETASERON [Suspect]
     Indication: MULTIPLE SCLEROSIS
     Dosage: 8 MIU, EVERY 2D, SUBCUTANEOUS
     Route: 058
     Dates: start: 20051123, end: 20060301
  2. LIPITOR [Suspect]
     Dosage: ORAL
     Route: 048
     Dates: end: 20060301
  3. FIBERCON (POLYCARBOPHIL CALCIUM) [Concomitant]
  4. VIVELLE [Concomitant]
  5. RHINOCORT [Concomitant]
  6. ASPIRNI ^BAYER^ (ACETYLSALICYLIC ACID) [Concomitant]
  7. CALCIUM (CALCIUM) [Concomitant]
  8. ONE-A-DAY (RETINOL) [Concomitant]
  9. NORVASC/DEN/(AMLODIPINE BESILATE) [Concomitant]
  10. ZETIA [Concomitant]
  11. METHADONE HCL [Concomitant]
  12. PREVACID [Concomitant]
  13. SYMBYAX (FLUOXETINE, OLANZAPINE) [Concomitant]
  14. SINEMET [Concomitant]
  15. METFORMIN HCL [Concomitant]

REACTIONS (3)
  - ABDOMINAL TENDERNESS [None]
  - HEPATIC FUNCTION ABNORMAL [None]
  - HEPATOMEGALY [None]
